FAERS Safety Report 8285556-3 (Version None)
Quarter: 2012Q2

REPORT INFORMATION
  Report Type: 
  Country: None (occurrence: None)
  Receive Date: 20120413
  Receipt Date: 20111216
  Transmission Date: 20120825
  Serious: No
  Sender: FDA-Public Use
  Company Number: US-ASTRAZENECA-2011SE76233

PATIENT
  Age: 51 Year
  Sex: Male
  Weight: 77.1 kg

DRUGS (16)
  1. CRESTOR [Suspect]
     Indication: BLOOD CHOLESTEROL ABNORMAL
     Route: 048
  2. LORTAB [Concomitant]
     Indication: BACK PAIN
  3. BENICORT [Concomitant]
  4. SEROQUEL [Suspect]
     Route: 048
  5. TRICOR [Concomitant]
     Indication: BLOOD TRIGLYCERIDES
  6. ALPRAZOLAM [Concomitant]
     Indication: ANXIETY
  7. SEROQUEL [Suspect]
     Indication: MENTAL DISORDER
     Route: 048
  8. IBUPROFEN [Concomitant]
     Indication: PAIN
  9. NEXIUM [Suspect]
     Indication: GASTROOESOPHAGEAL REFLUX DISEASE
     Route: 048
  10. SEROQUEL [Suspect]
     Indication: SLEEP DISORDER
     Route: 048
  11. FLUOXEGIN [Concomitant]
     Indication: ANTIDEPRESSANT THERAPY
  12. ANTIDEPRESSANTS [Concomitant]
  13. BENICAR [Concomitant]
     Indication: BLOOD PRESSURE
  14. SEROQUEL [Suspect]
     Route: 048
  15. LORTAB [Concomitant]
     Indication: PAIN
  16. CARISOPRODOL [Concomitant]
     Indication: MUSCLE SPASMS

REACTIONS (7)
  - INSOMNIA [None]
  - THERAPEUTIC RESPONSE UNEXPECTED [None]
  - DRUG INEFFECTIVE [None]
  - BLOOD CHOLESTEROL INCREASED [None]
  - SOMNOLENCE [None]
  - OFF LABEL USE [None]
  - DRUG INEFFECTIVE FOR UNAPPROVED INDICATION [None]
